FAERS Safety Report 4909800-2 (Version None)
Quarter: 2006Q1

REPORT INFORMATION
  Report Type: 
  Country: None (occurrence: None)
  Receive Date: 20060213
  Receipt Date: 20060201
  Transmission Date: 20060701
  Serious: Yes (Life-Threatening, Hospitalization)
  Sender: FDA-Public Use
  Company Number: NO-MERCK-0602NOR00002

PATIENT
  Age: 66 Year
  Sex: Male

DRUGS (4)
  1. VIOXX [Suspect]
     Indication: RHEUMATOID ARTHRITIS
     Route: 048
     Dates: start: 20010101, end: 20040901
  2. INFLIXIMAB [Concomitant]
     Indication: RHEUMATOID ARTHRITIS
     Route: 041
     Dates: start: 20031006, end: 20040213
  3. METHOTREXATE [Concomitant]
     Indication: RHEUMATOID ARTHRITIS
     Route: 030
     Dates: start: 20001001
  4. INFLIXIMAB [Concomitant]
     Route: 041
     Dates: start: 20040420, end: 20040928

REACTIONS (1)
  - MYOCARDIAL INFARCTION [None]
